FAERS Safety Report 8129687-7 (Version None)
Quarter: 2012Q1

REPORT INFORMATION
  Report Type: 
  Country: None (occurrence: None)
  Receive Date: 20120210
  Receipt Date: 20120203
  Transmission Date: 20120608
  Serious: Yes (Hospitalization)
  Sender: FDA-Public Use
  Company Number: US-ELI_LILLY_AND_COMPANY-US201110007818

PATIENT
  Sex: Male
  Weight: 107.94 kg

DRUGS (4)
  1. QUINAPRIL [Concomitant]
     Dosage: UNK
  2. LYRICA [Concomitant]
     Dosage: UNK
  3. HUMALOG [Suspect]
     Indication: DIABETES MELLITUS
     Dosage: 10 U, QID
  4. LANTUS [Concomitant]
     Dosage: UNK

REACTIONS (4)
  - STERNAL FRACTURE [None]
  - CATARACT [None]
  - WRIST FRACTURE [None]
  - ROAD TRAFFIC ACCIDENT [None]
